FAERS Safety Report 7797980-3 (Version None)
Quarter: 2011Q4

REPORT INFORMATION
  Report Type: 
  Country: None (occurrence: None)
  Receive Date: 20111005
  Receipt Date: 20110927
  Transmission Date: 20120403
  Serious: Yes (Hospitalization)
  Sender: FDA-Public Use
  Company Number: JP-GLAXOSMITHKLINE-B0740480A

PATIENT
  Sex: Female

DRUGS (4)
  1. DEPAKENE [Concomitant]
     Indication: EPILEPSY
     Dosage: 600MG PER DAY
     Route: 048
  2. ZONISAMIDE [Concomitant]
     Indication: EPILEPSY
     Dosage: 200MG PER DAY
     Route: 048
  3. LAMICTAL [Suspect]
     Indication: EPILEPSY
     Route: 048
     Dates: start: 20110707, end: 20110804
  4. TOPIRAMATE [Concomitant]
     Indication: EPILEPSY
     Dosage: 400MG PER DAY
     Route: 048

REACTIONS (17)
  - ALANINE AMINOTRANSFERASE INCREASED [None]
  - HAEMATOCRIT INCREASED [None]
  - PLATELET COUNT DECREASED [None]
  - OCULAR HYPERAEMIA [None]
  - PYREXIA [None]
  - OCULOMUCOCUTANEOUS SYNDROME [None]
  - BLOOD LACTATE DEHYDROGENASE INCREASED [None]
  - DRUG ERUPTION [None]
  - ASPARTATE AMINOTRANSFERASE INCREASED [None]
  - C-REACTIVE PROTEIN INCREASED [None]
  - ORAL PAIN [None]
  - EOSINOPHIL PERCENTAGE INCREASED [None]
  - GENITAL EROSION [None]
  - RASH MACULO-PAPULAR [None]
  - STEVENS-JOHNSON SYNDROME [None]
  - BAND NEUTROPHIL PERCENTAGE INCREASED [None]
  - MUCOSAL EROSION [None]
